FAERS Safety Report 23245338 (Version 3)
Quarter: 2023Q4

REPORT INFORMATION
  Report Type: Spontaneous
  Country: ES (occurrence: ES)
  Receive Date: 20231130
  Receipt Date: 20231229
  Transmission Date: 20240110
  Serious: Yes (Hospitalization, Other)
  Sender: FDA-Public Use
  Company Number: ES-JNJFOC-20231166669

PATIENT
  Age: 54 Year
  Sex: Male
  Weight: 115 kg

DRUGS (7)
  1. SPRAVATO [Suspect]
     Active Substance: ESKETAMINE
     Indication: Depression
     Dates: start: 20231020
  2. SPRAVATO [Suspect]
     Active Substance: ESKETAMINE
     Dates: start: 202311
  3. SPRAVATO [Suspect]
     Active Substance: ESKETAMINE
     Dosage: CURRENTLY RECEIVED 4TH SPRAVATO TREATMENT
     Dates: start: 20231109
  4. LITHIUM [Concomitant]
     Active Substance: LITHIUM
     Route: 065
  5. MIRTAZAPINE [Concomitant]
     Active Substance: MIRTAZAPINE
     Route: 065
  6. VENLAFAXINE [Concomitant]
     Active Substance: VENLAFAXINE HYDROCHLORIDE
     Route: 065
  7. LORAZEPAM [Concomitant]
     Active Substance: LORAZEPAM
     Route: 065

REACTIONS (1)
  - Peripheral vein thrombosis [Recovered/Resolved]

NARRATIVE: CASE EVENT DATE: 20231030
